FAERS Safety Report 12098923 (Version 1)
Quarter: 2016Q1

REPORT INFORMATION
  Report Type: Spontaneous
  Country: US (occurrence: US)
  Receive Date: 20160222
  Receipt Date: 20160222
  Transmission Date: 20160526
  Serious: No
  Sender: FDA-Public Use
  Company Number: US-TEVA-580429USA

PATIENT
  Age: 86 Year
  Sex: Female

DRUGS (1)
  1. ALENDRONIC ACID [Suspect]
     Active Substance: ALENDRONIC ACID
     Indication: OSTEOPOROSIS POSTMENOPAUSAL
     Dosage: FREQUENCY NOT PROVIDED
     Route: 065
     Dates: start: 201407

REACTIONS (3)
  - Gingival erythema [Unknown]
  - Gingival pain [Unknown]
  - Gingival recession [Unknown]

NARRATIVE: CASE EVENT DATE: 201507
